FAERS Safety Report 8596506-4 (Version None)
Quarter: 2012Q3

REPORT INFORMATION
  Report Type: 
  Country: None (occurrence: None)
  Receive Date: 20120815
  Receipt Date: 20120808
  Transmission Date: 20120928
  Serious: Yes (Other)
  Sender: FDA-Public Use
  Company Number: US-PFIZER INC-2012152284

PATIENT
  Age: 70 Year
  Sex: Female

DRUGS (4)
  1. LANTUS [Suspect]
     Indication: TYPE 1 DIABETES MELLITUS
     Dosage: 68 IU, 1X/DAY
  2. GLIMEPIRIDE [Suspect]
     Indication: TYPE 1 DIABETES MELLITUS
     Dosage: 4 MG, 1X/DAY
  3. GLUCOPHAGE [Suspect]
     Indication: TYPE 1 DIABETES MELLITUS
     Dosage: 1000 MG, 1X/DAY
  4. DETROL LA [Suspect]
     Indication: INCONTINENCE
     Dosage: 4 MG, 1X/DAY

REACTIONS (4)
  - BLOOD GLUCOSE DECREASED [None]
  - DRUG INEFFECTIVE [None]
  - LOSS OF CONSCIOUSNESS [None]
  - ACCIDENT [None]
